FAERS Safety Report 6121050-3 (Version None)
Quarter: 2009Q1

REPORT INFORMATION
  Report Type: 
  Country: None (occurrence: None)
  Receive Date: 20090312
  Receipt Date: 20090312
  Transmission Date: 20090719
  Serious: Yes (Hospitalization)
  Sender: FDA-Public Use
  Company Number: None

PATIENT
  Age: 61 Year
  Sex: Male
  Weight: 104.7809 kg

DRUGS (13)
  1. BYETTA [Suspect]
     Indication: TYPE 2 DIABETES MELLITUS
     Dosage: 5 MCG BID SQ
     Route: 058
     Dates: start: 20081001, end: 20090113
  2. METFORMIN HCL [Concomitant]
  3. GLYBURIDE [Concomitant]
  4. GLARGINE [Concomitant]
  5. CHLORTHALIDONE [Concomitant]
  6. ASPIRIN [Concomitant]
  7. EXENATIDE [Concomitant]
  8. ATORVASTATIN [Concomitant]
  9. LISINOPRIL [Concomitant]
  10. NAPROXEN [Concomitant]
  11. CALCIUM CITRATE [Concomitant]
  12. MULTI-VITAMIN [Concomitant]
  13. TRAVOPROST [Concomitant]

REACTIONS (8)
  - ECONOMIC PROBLEM [None]
  - HYPERTRIGLYCERIDAEMIA [None]
  - HYPOPHAGIA [None]
  - INAPPROPRIATE SCHEDULE OF DRUG ADMINISTRATION [None]
  - INCORRECT DOSE ADMINISTERED [None]
  - PANCREATITIS ACUTE [None]
  - TREATMENT NONCOMPLIANCE [None]
  - UNEVALUABLE EVENT [None]
